FAERS Safety Report 25493147 (Version 1)
Quarter: 2025Q2

REPORT INFORMATION
  Report Type: Spontaneous
  Country: FR (occurrence: FR)
  Receive Date: 20250630
  Receipt Date: 20250630
  Transmission Date: 20250716
  Serious: Yes (Other)
  Sender: MYLAN
  Company Number: FR-MYLANLABS-2025M1050388

PATIENT
  Age: 11 Year
  Sex: Female
  Weight: 37 kg

DRUGS (8)
  1. ZOLOFT [Suspect]
     Active Substance: SERTRALINE HYDROCHLORIDE
     Indication: Anxiety disorder
     Dosage: 25 MILLIGRAM, QD (DURING ONE WEEK)
     Route: 065
     Dates: start: 20241216, end: 202502
  2. ZOLOFT [Suspect]
     Active Substance: SERTRALINE HYDROCHLORIDE
     Dosage: 25 MILLIGRAM, QD (DURING ONE WEEK)
     Dates: start: 20241216, end: 202502
  3. ZOLOFT [Suspect]
     Active Substance: SERTRALINE HYDROCHLORIDE
     Dosage: 25 MILLIGRAM, QD (DURING ONE WEEK)
     Dates: start: 20241216, end: 202502
  4. ZOLOFT [Suspect]
     Active Substance: SERTRALINE HYDROCHLORIDE
     Dosage: 25 MILLIGRAM, QD (DURING ONE WEEK)
     Route: 065
     Dates: start: 20241216, end: 202502
  5. ZOLOFT [Suspect]
     Active Substance: SERTRALINE HYDROCHLORIDE
     Dosage: 50 MILLIGRAM, QD (DURING ONE WEEK)
     Route: 065
  6. ZOLOFT [Suspect]
     Active Substance: SERTRALINE HYDROCHLORIDE
     Dosage: 50 MILLIGRAM, QD (DURING ONE WEEK)
  7. ZOLOFT [Suspect]
     Active Substance: SERTRALINE HYDROCHLORIDE
     Dosage: 50 MILLIGRAM, QD (DURING ONE WEEK)
  8. ZOLOFT [Suspect]
     Active Substance: SERTRALINE HYDROCHLORIDE
     Dosage: 50 MILLIGRAM, QD (DURING ONE WEEK)
     Route: 065

REACTIONS (4)
  - Hallucination [Unknown]
  - Attention deficit hyperactivity disorder [Unknown]
  - Speech disorder [Unknown]
  - Off label use [Unknown]
